FAERS Safety Report 26126947 (Version 1)
Quarter: 2025Q4

REPORT INFORMATION
  Report Type: Report from Study
  Country: US (occurrence: US)
  Receive Date: 20251205
  Receipt Date: 20251205
  Transmission Date: 20260118
  Serious: Yes (Hospitalization)
  Sender: ABBVIE
  Company Number: US-ABBVIE-6566124

PATIENT
  Age: 61 Year
  Sex: Male
  Weight: 75.749 kg

DRUGS (8)
  1. VENCLEXTA [Suspect]
     Active Substance: VENETOCLAX
     Indication: Mantle cell lymphoma
     Route: 048
     Dates: start: 20250403, end: 20250409
  2. VENCLEXTA [Suspect]
     Active Substance: VENETOCLAX
     Indication: Mantle cell lymphoma
     Dosage: 100 MILLIGRAM
     Route: 048
     Dates: start: 20250410, end: 20250416
  3. VENCLEXTA [Suspect]
     Active Substance: VENETOCLAX
     Indication: Mantle cell lymphoma
     Route: 048
     Dates: start: 20250417, end: 20250423
  4. VENCLEXTA [Suspect]
     Active Substance: VENETOCLAX
     Indication: Mantle cell lymphoma
     Route: 048
     Dates: start: 20250424
  5. VENCLEXTA [Suspect]
     Active Substance: VENETOCLAX
     Indication: Mantle cell lymphoma
     Route: 048
     Dates: start: 20250327, end: 20250402
  6. BRUKINSA [Concomitant]
     Active Substance: ZANUBRUTINIB
     Indication: Mantle cell lymphoma
     Dates: start: 20250117
  7. GAZYVA [Concomitant]
     Active Substance: OBINUTUZUMAB
     Indication: Mantle cell lymphoma
     Route: 042
  8. CHLORHEXIDINE [Suspect]
     Active Substance: CHLORHEXIDINE
     Indication: Premedication
     Route: 061
     Dates: start: 20250723, end: 20250723

REACTIONS (19)
  - Amnesia [Recovered/Resolved]
  - Fatigue [Recovering/Resolving]
  - Erythema [Recovering/Resolving]
  - Headache [Unknown]
  - Rash [Recovered/Resolved]
  - Exposure to noise [Unknown]
  - Inflammation [Recovered/Resolved]
  - Dermatitis acneiform [Recovering/Resolving]
  - Rash [Recovering/Resolving]
  - Pruritus [Recovered/Resolved]
  - Infection [Recovered/Resolved]
  - Epistaxis [Recovered/Resolved]
  - Chemical burn [Recovering/Resolving]
  - Photopsia [Recovered/Resolved]
  - Hyperacusis [Recovering/Resolving]
  - Platelet count decreased [Recovering/Resolving]
  - Headache [Recovered/Resolved]
  - Groin pain [Recovered/Resolved]
  - Gait disturbance [Recovered/Resolved]

NARRATIVE: CASE EVENT DATE: 20250101
